FAERS Safety Report 18397140 (Version 7)
Quarter: 2021Q1

REPORT INFORMATION
  Report Type: Report from Study
  Country: SA (occurrence: SA)
  Receive Date: 20201019
  Receipt Date: 20210106
  Transmission Date: 20210419
  Serious: Yes (Hospitalization, Other)
  Sender: FDA-Public Use
  Company Number: SA-AMGEN-SAUSL2020130736

PATIENT
  Age: 49 Year
  Sex: Female

DRUGS (3)
  1. VECTIBIX [Suspect]
     Active Substance: PANITUMUMAB
     Dosage: UNK, Q2WK
     Route: 065
  2. VECTIBIX [Suspect]
     Active Substance: PANITUMUMAB
     Indication: PRODUCT USED FOR UNKNOWN INDICATION
     Dosage: UNK UNK, Q3WK (EVERY 3 WEEKS)
     Route: 065
  3. VECTIBIX [Suspect]
     Active Substance: PANITUMUMAB
     Dosage: UNK UNK, Q3WK
     Route: 065

REACTIONS (8)
  - Pruritus [Recovering/Resolving]
  - Off label use [Unknown]
  - Acne [Not Recovered/Not Resolved]
  - Surgery [Unknown]
  - Urinary tract infection [Not Recovered/Not Resolved]
  - Neutrophil count decreased [Unknown]
  - Dry skin [Recovering/Resolving]
  - Scar [Recovering/Resolving]
